FAERS Safety Report 4371585-9 (Version None)
Quarter: 2004Q2

REPORT INFORMATION
  Report Type: 
  Country: None (occurrence: None)
  Receive Date: 20040602
  Receipt Date: 20040517
  Transmission Date: 20050107
  Serious: Yes (Hospitalization)
  Sender: FDA-Public Use
  Company Number: 194338

PATIENT
  Age: 45 Year
  Sex: Female

DRUGS (5)
  1. AVONEX [Suspect]
     Indication: MULTIPLE SCLEROSIS
     Dosage: 30 MCG QW IM
     Route: 030
     Dates: start: 20010307
  2. ZOLOFT [Concomitant]
  3. ZANAFLEX [Concomitant]
  4. TYLENOL [Concomitant]
  5. MULTI-VITAMINS [Concomitant]

REACTIONS (5)
  - ABASIA [None]
  - ASTHENIA [None]
  - COORDINATION ABNORMAL [None]
  - MULTIPLE SCLEROSIS [None]
  - MUSCLE SPASTICITY [None]
